FAERS Safety Report 8543005-1 (Version None)
Quarter: 2012Q3

REPORT INFORMATION
  Report Type: 
  Country: None (occurrence: None)
  Receive Date: 20120727
  Receipt Date: 20120723
  Transmission Date: 20120928
  Serious: Yes (Hospitalization)
  Sender: FDA-Public Use
  Company Number: BG-JNJFOC-20120706786

PATIENT
  Sex: Female
  Weight: 54 kg

DRUGS (6)
  1. SIMPONI [Suspect]
     Indication: RHEUMATOID ARTHRITIS
     Dosage: 0.5 ML
     Route: 058
     Dates: start: 20120420
  2. METHYLPREDNISOLONE [Concomitant]
     Dosage: ONCE OR TWICE DAILY
     Route: 048
  3. NSAIDS [Concomitant]
     Indication: RHEUMATOID ARTHRITIS
     Route: 048
  4. METHYLPREDNISOLONE [Concomitant]
     Indication: RHEUMATOID ARTHRITIS
     Route: 048
     Dates: start: 20090101
  5. METHOTREXATE [Concomitant]
     Indication: RHEUMATOID ARTHRITIS
     Dosage: 10-15 MG
     Route: 048
     Dates: start: 20110101
  6. SIMPONI [Suspect]
     Dosage: APPROXIMATE TOTAL NUMBER OF INJECTIONS PATIENT RECEIVED 4 AMP
     Route: 058
     Dates: start: 20120702

REACTIONS (2)
  - THROMBOPHLEBITIS [None]
  - RHEUMATOID ARTHRITIS [None]
